FAERS Safety Report 18463208 (Version 3)
Quarter: 2021Q4

REPORT INFORMATION
  Report Type: Spontaneous
  Country: AE (occurrence: AE)
  Receive Date: 20201104
  Receipt Date: 20211201
  Transmission Date: 20220303
  Serious: Yes (Death, Other)
  Sender: FDA-Public Use
  Company Number: AE-PFIZER INC-2020102733

PATIENT
  Age: 26 Year
  Sex: Male

DRUGS (1)
  1. BESPONSA [Suspect]
     Active Substance: INOTUZUMAB OZOGAMICIN
     Dosage: CYCLIC (CYCLES: DAY 1: 0.8 MG/M2 DAY 8: 0.5 MG/M2 DAY 15: 0.5 MG/M2)
     Route: 042
     Dates: start: 20191219, end: 202008

REACTIONS (3)
  - Death [Fatal]
  - Bone marrow failure [Recovering/Resolving]
  - Neoplasm progression [Unknown]

NARRATIVE: CASE EVENT DATE: 20200501
